FAERS Safety Report 8115404-3 (Version None)
Quarter: 2012Q1

REPORT INFORMATION
  Report Type: 
  Country: None (occurrence: None)
  Receive Date: 20120206
  Receipt Date: 20120206
  Transmission Date: 20120608
  Serious: Yes (Hospitalization)
  Sender: FDA-Public Use
  Company Number: None

PATIENT
  Age: 38 Year
  Sex: Female
  Weight: 111.13 kg

DRUGS (1)
  1. TERBUTALINE [Suspect]
     Indication: PREMATURE LABOUR
     Dosage: 5
     Route: 048
     Dates: start: 20120203, end: 20120203

REACTIONS (2)
  - TACHYCARDIA [None]
  - BLOOD PRESSURE INCREASED [None]
